FAERS Safety Report 6727557-X (Version None)
Quarter: 2010Q2

REPORT INFORMATION
  Report Type: 
  Country: None (occurrence: None)
  Receive Date: 20100517
  Receipt Date: 20100506
  Transmission Date: 20101027
  Serious: Yes (Hospitalization)
  Sender: FDA-Public Use
  Company Number: PHHY2008DE18687

PATIENT
  Sex: Male

DRUGS (5)
  1. MYFORTIC [Suspect]
     Indication: RENAL TRANSPLANT
     Dosage: 1440 MG/DAY
     Route: 048
     Dates: start: 20080716, end: 20080813
  2. MYFORTIC [Suspect]
     Dosage: 720 MG/DAY
     Route: 048
     Dates: start: 20080813
  3. SANDIMMUNE [Suspect]
     Indication: RENAL TRANSPLANT
     Dosage: 200 MG/DAY
     Route: 048
     Dates: start: 20080716
  4. SANDIMMUNE [Suspect]
     Dosage: 200 MG PER DAY
     Route: 048
     Dates: start: 20080716
  5. DECORTIN [Concomitant]
     Indication: RENAL TRANSPLANT
     Dosage: 10 MG/DAY
     Route: 048
     Dates: start: 20080811

REACTIONS (2)
  - HERPES SIMPLEX [None]
  - HERPES ZOSTER [None]
